FAERS Safety Report 7443548-8 (Version None)
Quarter: 2011Q2

REPORT INFORMATION
  Report Type: 
  Country: None (occurrence: None)
  Receive Date: 20110428
  Receipt Date: 20110426
  Transmission Date: 20111010
  Serious: Yes (Hospitalization)
  Sender: FDA-Public Use
  Company Number: DE-ABBOTT-11P-062-0721843-00

PATIENT
  Sex: Female

DRUGS (3)
  1. UNASYN [Concomitant]
     Indication: PRODUCT USED FOR UNKNOWN INDICATION
  2. ANTIBIOTICS NOT FURTHER SPECIFIED [Concomitant]
     Indication: PRODUCT USED FOR UNKNOWN INDICATION
  3. HUMIRA [Suspect]
     Indication: CROHN'S DISEASE
     Route: 058
     Dates: start: 20100728, end: 20110327

REACTIONS (3)
  - PAIN IN EXTREMITY [None]
  - CHILLS [None]
  - PNEUMONIA [None]
